FAERS Safety Report 15424854 (Version 1)
Quarter: 2018Q3

REPORT INFORMATION
  Report Type: Report from Study
  Country: CA (occurrence: CA)
  Receive Date: 20180925
  Receipt Date: 20180925
  Transmission Date: 20181010
  Serious: Yes (Other)
  Sender: FDA-Public Use
  Company Number: CA-JNJFOC-20180919920

PATIENT
  Age: 16 Year
  Sex: Male
  Weight: 68 kg

DRUGS (4)
  1. ACIDE FOLIQUE [Concomitant]
     Active Substance: FOLIC ACID
     Route: 065
  2. METHOTREXATE. [Concomitant]
     Active Substance: METHOTREXATE
     Route: 065
  3. ASACOL [Concomitant]
     Active Substance: MESALAMINE
     Route: 065
  4. REMICADE [Suspect]
     Active Substance: INFLIXIMAB
     Indication: COLITIS ULCERATIVE
     Dosage: STRENGTH = 100 MG/ML
     Route: 042
     Dates: start: 20170605

REACTIONS (4)
  - General physical health deterioration [Unknown]
  - Off label use [Unknown]
  - Colitis ulcerative [Not Recovered/Not Resolved]
  - Product use issue [Unknown]

NARRATIVE: CASE EVENT DATE: 20170605
